FAERS Safety Report 9096207 (Version 3)
Quarter: 2013Q2

REPORT INFORMATION
  Report Type: Report from Study
  Country: CH (occurrence: CH)
  Receive Date: 20130207
  Receipt Date: 20130603
  Transmission Date: 20140414
  Serious: Yes (Hospitalization, Disabling)
  Sender: FDA-Public Use
  Company Number: CH-BRISTOL-MYERS SQUIBB COMPANY-17354929

PATIENT
  Age: 42 Year
  Sex: Male

DRUGS (8)
  1. CETUXIMAB [Suspect]
     Indication: OESOPHAGEAL CARCINOMA
     Dates: start: 20111118
  2. CISPLATIN [Suspect]
     Indication: OESOPHAGEAL CARCINOMA
     Dates: start: 20111118
  3. DOCETAXEL [Suspect]
     Indication: OESOPHAGEAL CARCINOMA
     Dates: start: 20111118
  4. PLAVIX [Concomitant]
     Route: 048
     Dates: start: 20120220, end: 20120304
  5. FRAXIFORTE [Concomitant]
     Dosage: 04MAR12-ONG:1.6 ML
     Route: 058
     Dates: start: 20111213, end: 20120304
  6. SYMBICORT [Concomitant]
     Dosage: 1 DF = 1600/48 MG
  7. NEXIUM [Concomitant]
     Route: 048
     Dates: start: 20111227
  8. DAFALGAN [Concomitant]
     Route: 048
     Dates: start: 20120220

REACTIONS (3)
  - Femoral artery embolism [Unknown]
  - Peripheral ischaemia [Unknown]
  - Leg amputation [Recovered/Resolved with Sequelae]
